FAERS Safety Report 7908507-7 (Version None)
Quarter: 2011Q4

REPORT INFORMATION
  Report Type: 
  Country: None (occurrence: None)
  Receive Date: 20111111
  Receipt Date: 20111101
  Transmission Date: 20120403
  Serious: Yes (Hospitalization, Other)
  Sender: FDA-Public Use
  Company Number: US-BAYER-201036114NA

PATIENT
  Age: 36 Year
  Sex: Female
  Weight: 73.923 kg

DRUGS (4)
  1. YAZ [Suspect]
     Indication: OVARIAN CYST
  2. IBUPROFEN [Concomitant]
     Indication: PAIN
     Dosage: UNK UNK, TID
     Route: 048
     Dates: start: 20090526, end: 20090614
  3. YAZ [Suspect]
     Indication: CONTRACEPTION
     Dosage: UNK
     Dates: start: 20090501, end: 20090901
  4. PHENTERMINE [Concomitant]
     Dosage: 30 MG, QD
     Route: 048

REACTIONS (10)
  - CHOLECYSTITIS [None]
  - CHOLECYSTECTOMY [None]
  - CONSTIPATION [None]
  - DEPRESSION [None]
  - FLATULENCE [None]
  - ABDOMINAL DISTENSION [None]
  - DYSPEPSIA [None]
  - DIARRHOEA [None]
  - ANXIETY [None]
  - SCAR [None]
